FAERS Safety Report 8171577-8 (Version None)
Quarter: 2012Q1

REPORT INFORMATION
  Report Type: 
  Country: None (occurrence: None)
  Receive Date: 20120104
  Receipt Date: 20111111
  Transmission Date: 20120608
  Serious: No
  Sender: FDA-Public Use
  Company Number: 2011HGS-002782

PATIENT
  Age: 28 Year
  Sex: Female
  Weight: 50.8029 kg

DRUGS (12)
  1. ZANTAC [Concomitant]
  2. BENLYSTA [Suspect]
     Indication: SYSTEMIC LUPUS ERYTHEMATOSUS
     Dosage: 1 IN 28 D, INTRAVENOUS DRIP
     Route: 041
     Dates: start: 20110502
  3. PLAQUENIL [Concomitant]
  4. ZOFRAN [Concomitant]
  5. PHENERGAN HCL [Concomitant]
  6. LIBRAX (CHLORDIAZEPOXIDE) (CHLORDIAZEPOXIDE, CLIDINIUM) [Concomitant]
  7. PROTONIX [Concomitant]
  8. FIORICET (AXOTAL /OLD FORM/ (CAFFEINE, BUTALBITAL, PARACETAMOL) [Concomitant]
  9. PREDNISONE TAB [Concomitant]
  10. METOPROLOL TARTRATE [Concomitant]
  11. HYDROCODONE BITARTRATE [Concomitant]
  12. PAMELOR [Concomitant]

REACTIONS (23)
  - BLOOD PRESSURE DECREASED [None]
  - PLATELET COUNT DECREASED [None]
  - ARTHROPATHY [None]
  - BLOOD POTASSIUM DECREASED [None]
  - RETCHING [None]
  - CONNECTIVE TISSUE DISORDER [None]
  - MUSCLE ATROPHY [None]
  - CHEST PAIN [None]
  - FATIGUE [None]
  - JOINT DISLOCATION [None]
  - DISLOCATION OF STERNUM [None]
  - MUSCULOSKELETAL DISORDER [None]
  - MUSCLE RIGIDITY [None]
  - SLEEP ATTACKS [None]
  - NAUSEA [None]
  - HYPOAESTHESIA [None]
  - SYNCOPE [None]
  - FEELING COLD [None]
  - OEDEMA PERIPHERAL [None]
  - MIGRAINE [None]
  - RED BLOOD CELL COUNT DECREASED [None]
  - SENSATION OF PRESSURE [None]
  - HAEMANGIOMA OF LIVER [None]
